FAERS Safety Report 13841085 (Version 3)
Quarter: 2017Q4

REPORT INFORMATION
  Report Type: Report from Study
  Country: BR (occurrence: BR)
  Receive Date: 20170807
  Receipt Date: 20171017
  Transmission Date: 20180320
  Serious: Yes (Other)
  Sender: FDA-Public Use
  Company Number: PHHY2017BR113367

PATIENT
  Age: 74 Year
  Sex: Female
  Weight: 80 kg

DRUGS (1)
  1. SANDOSTATIN LAR DEPOT [Suspect]
     Active Substance: OCTREOTIDE ACETATE
     Indication: ACROMEGALY
     Dosage: 30 MG, QMO
     Route: 030
     Dates: start: 2012

REACTIONS (8)
  - Pain [Unknown]
  - Vitamin D decreased [Unknown]
  - Fall [Unknown]
  - Rib fracture [Recovering/Resolving]
  - Back pain [Recovering/Resolving]
  - Weight increased [Unknown]
  - Spinal deformity [Unknown]
  - Mental disorder [Unknown]

NARRATIVE: CASE EVENT DATE: 20170923
